FAERS Safety Report 23967996 (Version 1)
Quarter: 2024Q2

REPORT INFORMATION
  Report Type: Spontaneous
  Country: US (occurrence: US)
  Receive Date: 20240612
  Receipt Date: 20240612
  Transmission Date: 20240716
  Serious: Yes (Hospitalization, Other)
  Sender: FDA-Public Use
  Company Number: US-SA-SAC20240610000674

PATIENT
  Age: 57 Year
  Sex: Female

DRUGS (28)
  1. DUPIXENT [Suspect]
     Active Substance: DUPILUMAB
     Dosage: UNK
     Route: 065
     Dates: start: 20240325, end: 2024
  2. ALBUTEROL SULFATE [Concomitant]
     Active Substance: ALBUTEROL SULFATE
     Indication: Wheezing
     Dosage: INHALE ONE VIAL VIA NEBULIZER EVERY 4 HOURS AS NEEDED FOR WHEEZING OR SHORTNESS OF BREATH FOR UP TO
     Route: 055
     Dates: start: 20240405
  3. ALBUTEROL SULFATE [Concomitant]
     Active Substance: ALBUTEROL SULFATE
     Indication: Dyspnoea
  4. ALBUTEROL SULFATE [Concomitant]
     Active Substance: ALBUTEROL SULFATE
     Indication: Wheezing
     Dosage: INHALE TWO PUFFS BY MOUTH EVERY4 HOURS AS NEEDED FOR WHEEZING
     Route: 055
     Dates: start: 20240405
  5. AMLODIPINE [Concomitant]
     Active Substance: AMLODIPINE BESYLATE
     Dosage: TAKE ONE TABLET BY MOUTH ONE TIME DAILY
     Route: 048
     Dates: start: 20240405
  6. AMOXICILLIN\CLAVULANATE POTASSIUM [Concomitant]
     Active Substance: AMOXICILLIN\CLAVULANATE POTASSIUM
     Dosage: ONE TABLET BY MOUTH EVERY 12 HOURS
     Route: 048
     Dates: start: 20230906
  7. AZITHROMYCIN [Concomitant]
     Active Substance: AZITHROMYCIN
     Dosage: TAKE TWO TABLETS BY MOUTH ON DAY 1, THEN TAKE ONE TABLET ONE TIME DAILY
     Route: 048
     Dates: start: 20240207
  8. AZITHROMYCIN [Concomitant]
     Active Substance: AZITHROMYCIN
     Dosage: TAKE ONE TABLET BY MOUTH ONE TIME DAILY FOR 2 DAYS
     Route: 048
     Dates: start: 20240405
  9. BENZONATATE [Concomitant]
     Active Substance: BENZONATATE
     Dosage: TAKE ONE CAPSULE BY MOUTH THREE TIMES A DAY FOR 10 DAYS
     Route: 048
     Dates: start: 20231012
  10. CEFDINIR [Concomitant]
     Active Substance: CEFDINIR
     Dosage: TAKE ONE CAPSULE BY MOUTH TIMCE A DAY FOR 2 DAYS
     Route: 048
     Dates: start: 20240405
  11. CEFUROXIME AXETIL [Concomitant]
     Active Substance: CEFUROXIME AXETIL
     Dosage: TAKE ONE TABLET BY MOUTH EVERY 12 HOURS FOR 10 DAYS
     Route: 048
     Dates: start: 20230725
  12. CEPHALEXIN [Concomitant]
     Active Substance: CEPHALEXIN
     Dosage: TAKE ONE CAPSULE BY MOUTH THREE TIMES A DAY (IN THE MORNING, IN THE
     Route: 048
     Dates: start: 20230713
  13. CLINDAMYCIN HYDROCHLORIDE [Concomitant]
     Active Substance: CLINDAMYCIN HYDROCHLORIDE
     Dosage: TAKE ONE CAPSULE BY MOUTH THREE TIMES A DAY FOR 14 DAYS
     Route: 048
     Dates: start: 20231012
  14. ECONAZOLE [Concomitant]
     Active Substance: ECONAZOLE
     Dosage: APPLY TOPICALLY ONE TIME DAILY
     Dates: start: 20230713
  15. FLUTICASONE PROPIONATE [Concomitant]
     Active Substance: FLUTICASONE PROPIONATE
     Dosage: USE TWO SPRAYS IN EACH NOSTRIL ONE TIME DAILY
     Dates: start: 20230906
  16. HYDROCODONE BITARTRATE AND ACETAMINOPHEN [Concomitant]
     Active Substance: ACETAMINOPHEN\HYDROCODONE BITARTRATE
     Indication: Pain
     Dosage: TAKE ONE TABLET BY MOUTH EVERY 6 HOURS AS NEEDED FOR PAIN
     Route: 048
     Dates: start: 20231207
  17. IPRATROPIUM BROMIDE [Concomitant]
     Active Substance: IPRATROPIUM BROMIDE\IPRATROPIUM BROMIDE ANHYDROUS
     Dosage: INHALE 1 VIAL BY NEBULIZATION EVERY 6 HOURS AS NEEDED
     Route: 055
     Dates: start: 20230626
  18. KETOCONAZOLE [Concomitant]
     Active Substance: KETOCONAZOLE
     Dosage: TAKE ONE TABLET BY MOUTH EVERY MORNING
     Route: 048
     Dates: start: 20230712
  19. METHYLPREDNISOLONE [Concomitant]
     Active Substance: METHYLPREDNISOLONE
     Dosage: TAKE BY MOUTH AS DIRECTED ON PACKAGE
     Dates: start: 20240103
  20. MONTELUKAST [Concomitant]
     Active Substance: MONTELUKAST SODIUM
     Dosage: TAKE ONE TABLET BY MOUTH ONE TIME DAILY
     Route: 048
     Dates: start: 20240405
  21. OMEPRAZOLE [Concomitant]
     Active Substance: DONEPEZIL HYDROCHLORIDE\OMEPRAZOLE\OMEPRAZOLE MAGNESIUM
     Dosage: TAKE ONE CAPSULE BY MOUTH ONE TIME DAILY BEFORE A MEAL
     Dates: start: 20230713
  22. OSELTAMIVIR [Concomitant]
     Active Substance: OSELTAMIVIR
     Dosage: TAKE ONE CAPSULE BY MOUTH TWICE A DAY FOR 5 DAYS
     Route: 048
     Dates: start: 20221111
  23. PANTOPRAZOLE [Concomitant]
     Active Substance: PANTOPRAZOLE
     Dosage: TAKE ONE TABLET BY MOUTH ONE TIME DAILY
     Route: 048
     Dates: start: 20230207
  24. PREDNISONE [Concomitant]
     Active Substance: PREDNISONE
     Dosage: TAKE AS DIRECTED ON PACKAGE FOR 6 DAYS
     Dates: start: 20240306
  25. PREDNISONE [Concomitant]
     Active Substance: PREDNISONE
     Dosage: ? TAKE THREE TABLETS BY MOUTH ONE TIME DAILY FOR 3 DAYS, TAKE TWO TABLETS BY MOUTH ONE TIME DAILY FO
     Route: 048
     Dates: start: 20240207
  26. PROMETHAZINE [Concomitant]
     Active Substance: PROMETHAZINE HYDROCHLORIDE
     Indication: Cough
     Dosage: TAKE 5 ML BY MOUTH FOUR TIMES A DAY AS NEEDED FOR COUGH
     Route: 048
  27. TRELEGY ELLIPTA [Concomitant]
     Active Substance: FLUTICASONE FUROATE\UMECLIDINIUM BROMIDE\VILANTEROL TRIFENATATE
     Dosage: UNK
     Dates: start: 20240409
  28. TRIAMCINOLONE ACETONIDE [Concomitant]
     Active Substance: TRIAMCINOLONE ACETONIDE
     Indication: Pruritus
     Dosage: APPLY ONE TOPICALLY TWICE A DAY AS NEEDED FOR ITCHING FOR 7 DAYS
     Dates: start: 20221018

REACTIONS (5)
  - Pneumonia [Recovering/Resolving]
  - Immune thrombocytopenia [Unknown]
  - Cough [Recovering/Resolving]
  - Eye haemorrhage [Unknown]
  - Dyspnoea [Unknown]

NARRATIVE: CASE EVENT DATE: 20240101
